FAERS Safety Report 8964291 (Version 1)
Quarter: 2012Q4

REPORT INFORMATION
  Report Type: 
  Country: US (occurrence: US)
  Receive Date: 20121214
  Receipt Date: 20121214
  Transmission Date: 20130627
  Serious: Yes (Hospitalization)
  Sender: FDA-Public Use
  Company Number: US-PFIZER INC-2004009280

PATIENT
  Age: 60 Year

DRUGS (3)
  1. IBUPROFEN [Suspect]
     Indication: PAIN
     Dosage: 800MG TID
     Route: 048
  2. HYDROCHLOROTHIAZIDE [Concomitant]
     Dosage: 25 MG QD
  3. CAPTOPRIL [Concomitant]
     Dosage: 50 MG 1 1/2 TAB BID

REACTIONS (9)
  - Pneumonia streptococcal [Unknown]
  - Urinary tract infection [Unknown]
  - Anaemia [Unknown]
  - Cardiac murmur [Unknown]
  - Pyrexia [Unknown]
  - Pain [Unknown]
  - Paraesthesia [Unknown]
  - Asthenia [Unknown]
  - Drug ineffective [Unknown]
